FAERS Safety Report 5990079-8 (Version None)
Quarter: 2008Q4

REPORT INFORMATION
  Report Type: 
  Country: None (occurrence: None)
  Receive Date: 20081208
  Receipt Date: 20081118
  Transmission Date: 20090506
  Serious: Yes (Other)
  Sender: FDA-Public Use
  Company Number: GAM-207-08-FR

PATIENT
  Age: 55 Year
  Sex: Male

DRUGS (1)
  1. OCTAGAM [Suspect]
     Indication: THROMBOCYTOPENIA
     Dosage: 59 G
     Route: 042
     Dates: start: 20081015, end: 20081016

REACTIONS (2)
  - ANTI-HBC ANTIBODY POSITIVE [None]
  - TRANSMISSION OF AN INFECTIOUS AGENT VIA A MEDICINAL PRODUCT [None]
